FAERS Safety Report 21045630 (Version 1)
Quarter: 2022Q3

REPORT INFORMATION
  Report Type: Spontaneous
  Country: US (occurrence: US)
  Receive Date: 20220706
  Receipt Date: 20220706
  Transmission Date: 20221026
  Serious: No
  Sender: FDA-Public Use
  Company Number: ENDG21-03910

PATIENT
  Sex: Female

DRUGS (1)
  1. CALCITONIN SALMON [Suspect]
     Active Substance: CALCITONIN SALMON
     Indication: Osteoporosis
     Dosage: 1 DF= 1 PUFF, 1 PUFF IN ONE NOSTRIL DAILY, DO NOT USE THE SAME NOSTRIL FROM PREVIOUS DAY
     Route: 045
     Dates: start: 2012

REACTIONS (3)
  - Thyroid disorder [Not Recovered/Not Resolved]
  - Product dose omission issue [Unknown]
  - Device issue [Unknown]

NARRATIVE: CASE EVENT DATE: 20200101
